FAERS Safety Report 8417943-4 (Version None)
Quarter: 2012Q2

REPORT INFORMATION
  Report Type: 
  Country: None (occurrence: None)
  Receive Date: 20120607
  Receipt Date: 20120528
  Transmission Date: 20120825
  Serious: Yes (Hospitalization)
  Sender: FDA-Public Use
  Company Number: BR-BRISTOL-MYERS SQUIBB COMPANY-16645160

PATIENT
  Age: 61 Year
  Sex: Female
  Weight: 107 kg

DRUGS (5)
  1. LANTUS [Suspect]
     Indication: DIABETES MELLITUS
  2. SYNTHROID [Concomitant]
  3. ONGLYZA [Suspect]
     Indication: DIABETES MELLITUS
     Dosage: 28-MAY-2012 RESUMED
     Route: 048
  4. METFORMIN HCL [Suspect]
     Indication: DIABETES MELLITUS
  5. REGULAR INSULIN [Suspect]
     Indication: DIABETES MELLITUS
     Dosage: INTERRUPTED:28MAY12

REACTIONS (1)
  - INTESTINAL RESECTION [None]
